FAERS Safety Report 9190926 (Version 1)
Quarter: 2013Q1

REPORT INFORMATION
  Report Type: Spontaneous
  Country: US (occurrence: US)
  Receive Date: 20130326
  Receipt Date: 20130326
  Transmission Date: 20140127
  Serious: Yes (Other)
  Sender: FDA-Public Use
  Company Number: PHEH2013US006575

PATIENT
  Age: 55 Year
  Sex: Female
  Weight: 62.13 kg

DRUGS (1)
  1. GILENYA [Suspect]
     Indication: MULTIPLE SCLEROSIS
     Dosage: 1 DF, QD
     Route: 048
     Dates: start: 20130315

REACTIONS (2)
  - Retinal tear [Not Recovered/Not Resolved]
  - Vitreous floaters [Not Recovered/Not Resolved]
